FAERS Safety Report 7381503-7 (Version None)
Quarter: 2011Q1

REPORT INFORMATION
  Report Type: 
  Country: None (occurrence: None)
  Receive Date: 20110329
  Receipt Date: 20110318
  Transmission Date: 20110831
  Serious: Yes (Other)
  Sender: FDA-Public Use
  Company Number: US-MERCK-1103USA02527

PATIENT
  Sex: Female

DRUGS (1)
  1. FOSAMAX [Suspect]
     Route: 048

REACTIONS (9)
  - SYSTEMIC LUPUS ERYTHEMATOSUS [None]
  - RENAL DISORDER [None]
  - MUSCLE SPASMS [None]
  - FRACTURE [None]
  - OEDEMA PERIPHERAL [None]
  - CEREBROVASCULAR ACCIDENT [None]
  - THROMBOSIS [None]
  - TRANSIENT ISCHAEMIC ATTACK [None]
  - HEART RATE IRREGULAR [None]
